FAERS Safety Report 10914685 (Version 2)
Quarter: 2015Q3

REPORT INFORMATION
  Report Type: Report from Study
  Country: KR (occurrence: KR)
  Receive Date: 20150313
  Receipt Date: 20150708
  Transmission Date: 20151125
  Serious: Yes (Hospitalization)
  Sender: FDA-Public Use
  Company Number: KR-ABBVIE-15P-090-1360761-00

PATIENT
  Sex: Male
  Weight: 64 kg

DRUGS (59)
  1. PARAMACET [Concomitant]
     Indication: ARTHRALGIA
     Route: 048
     Dates: start: 20090720, end: 20140902
  2. TACENOL [Concomitant]
     Indication: ARTHRALGIA
     Route: 048
     Dates: start: 20140903
  3. TALION [Concomitant]
     Active Substance: BEPOTASTINE
     Route: 048
     Dates: start: 20140912
  4. RHINOVENT [Concomitant]
     Indication: VASOMOTOR RHINITIS
     Route: 045
     Dates: start: 20140912
  5. ALLED [Concomitant]
     Indication: GASTRIC DISORDER
     Route: 048
     Dates: start: 20141204, end: 20141210
  6. DEXAMETHASONE. [Concomitant]
     Active Substance: DEXAMETHASONE
     Indication: NECK PAIN
     Route: 042
     Dates: start: 20140930, end: 20140930
  7. CYMBALTA [Concomitant]
     Active Substance: DULOXETINE HYDROCHLORIDE
     Indication: NECK PAIN
     Route: 048
     Dates: start: 20150127, end: 20150209
  8. CYMBALTA [Concomitant]
     Active Substance: DULOXETINE HYDROCHLORIDE
     Route: 048
     Dates: start: 20150213, end: 20150227
  9. GABAPENTIN. [Concomitant]
     Active Substance: GABAPENTIN
     Indication: NECK PAIN
     Route: 048
     Dates: start: 20130312, end: 20141127
  10. ALL OTHER THERAPEUTIC PRODUCTS [Concomitant]
     Active Substance: UNSPECIFIED INGREDIENT
     Indication: NECK PAIN
     Dates: start: 20141204, end: 20141204
  11. MOTESON [Concomitant]
     Indication: VASOMOTOR RHINITIS
     Route: 045
     Dates: start: 20141017
  12. TARGIN [Concomitant]
     Active Substance: NALOXONE HYDROCHLORIDE\OXYCODONE HYDROCHLORIDE
     Indication: NECK PAIN
     Route: 048
     Dates: start: 20141211, end: 20150204
  13. ADISEN [Concomitant]
     Route: 048
     Dates: start: 20140919, end: 20141112
  14. RIVOTRIL [Concomitant]
     Active Substance: CLONAZEPAM
     Indication: SEDATION
     Route: 048
     Dates: start: 20150127, end: 20150210
  15. NEUSILIN [Concomitant]
     Indication: GASTRIC DISORDER
     Route: 048
     Dates: start: 20141230, end: 20150109
  16. ASPIRIN. [Concomitant]
     Active Substance: ASPIRIN
     Indication: CARDIOVASCULAR EVENT PROPHYLAXIS
     Route: 048
     Dates: start: 20080613
  17. ADISEN [Concomitant]
     Route: 048
     Dates: start: 20150213, end: 20150227
  18. ANOREX [Concomitant]
     Active Substance: PHENMETRAZINE HYDROCHLORIDE
     Route: 048
     Dates: start: 20141230
  19. STILLEN [Concomitant]
     Indication: PROPHYLAXIS
     Route: 048
     Dates: start: 20141230
  20. FOLIC ACID. [Concomitant]
     Active Substance: FOLIC ACID
     Indication: ARTHRALGIA
     Route: 048
     Dates: start: 20120314
  21. VESICARE [Concomitant]
     Active Substance: SOLIFENACIN SUCCINATE
     Indication: BENIGN PROSTATIC HYPERPLASIA
     Route: 048
     Dates: start: 20130116
  22. ALL OTHER THERAPEUTIC PRODUCTS [Concomitant]
     Active Substance: UNSPECIFIED INGREDIENT
     Indication: RESPIRATORY DISORDER
     Route: 048
     Dates: start: 20141017
  23. TACENOL [Concomitant]
     Indication: PROPHYLAXIS
  24. TALION [Concomitant]
     Active Substance: BEPOTASTINE
     Indication: VASOMOTOR RHINITIS
     Route: 048
     Dates: start: 20120312, end: 20140906
  25. LODINE [Concomitant]
     Active Substance: ETODOLAC
     Indication: ARTHRALGIA
     Route: 048
     Dates: start: 20141128, end: 20150122
  26. POTEMIN [Concomitant]
     Indication: NUTRITIONAL SUPPLEMENTATION
     Dosage: UNIT DOSE:1 BAG; DAILY DOSE:1 BAG
     Route: 042
     Dates: start: 20150227, end: 20150227
  27. OPALMON [Concomitant]
     Active Substance: LIMAPROST
     Indication: NECK PAIN
     Route: 048
     Dates: start: 20150213, end: 20150227
  28. RENOX [Concomitant]
     Indication: PROPHYLAXIS
  29. STILLEN [Concomitant]
     Indication: GASTRIC DISORDER
     Route: 048
     Dates: start: 20090127, end: 20141127
  30. STILLEN [Concomitant]
     Indication: NECK PAIN
  31. ARAVA [Concomitant]
     Active Substance: LEFLUNOMIDE
     Indication: ARTHRALGIA
     Route: 048
     Dates: start: 20110316
  32. ALLED [Concomitant]
     Indication: NECK PAIN
     Route: 048
     Dates: start: 20150122, end: 20150204
  33. BEECOM HEXA [Concomitant]
     Indication: VITAMIN SUPPLEMENTATION
     Route: 042
     Dates: start: 20150227, end: 20150227
  34. OPALMON [Concomitant]
     Active Substance: LIMAPROST
     Indication: NECK PAIN
     Route: 048
     Dates: start: 20141204, end: 20141221
  35. ADISEN [Concomitant]
     Indication: NECK PAIN
     Route: 048
     Dates: start: 20141204, end: 20141210
  36. NEUSILIN [Concomitant]
     Indication: PROPHYLAXIS
  37. HEXAMEDINE [Concomitant]
     Indication: PROPHYLAXIS
  38. ANOREX [Concomitant]
     Active Substance: PHENMETRAZINE HYDROCHLORIDE
     Indication: NECK PAIN
     Route: 048
     Dates: start: 20090121, end: 20141127
  39. CELEBREX [Concomitant]
     Active Substance: CELECOXIB
     Indication: NECK PAIN
     Route: 048
     Dates: start: 20111121, end: 20141005
  40. NEURONTIN [Concomitant]
     Active Substance: GABAPENTIN
     Indication: NECK PAIN
     Route: 048
     Dates: start: 20141230
  41. ADISEN [Concomitant]
     Route: 048
     Dates: start: 20150122, end: 20150204
  42. RENOX [Concomitant]
     Indication: STOMATITIS
     Route: 048
     Dates: start: 20141230, end: 20150109
  43. HEXAMEDINE [Concomitant]
     Indication: STOMATITIS
     Dates: start: 20141230
  44. TEVETEN [Suspect]
     Active Substance: EPROSARTAN MESYLATE
     Indication: PRODUCT USED FOR UNKNOWN INDICATION
     Route: 048
  45. ALL OTHER THERAPEUTIC PRODUCTS [Concomitant]
     Active Substance: UNSPECIFIED INGREDIENT
     Indication: VASOMOTOR RHINITIS
     Route: 048
     Dates: start: 20140912
  46. AVAMYS [Concomitant]
     Active Substance: FLUTICASONE FUROATE
     Indication: VASOMOTOR RHINITIS
     Route: 045
     Dates: start: 20110318, end: 20141016
  47. PREVENTAN [Concomitant]
     Indication: DERMATITIS
     Dosage: 3 TIMES
     Dates: start: 20141017, end: 20141117
  48. LIMADIN [Concomitant]
     Indication: NECK PAIN
     Route: 048
     Dates: start: 20140919, end: 20141112
  49. ALLED [Concomitant]
     Indication: PROPHYLAXIS
  50. OPALMON [Concomitant]
     Active Substance: LIMAPROST
     Indication: NECK PAIN
     Route: 048
     Dates: start: 20150122, end: 20150204
  51. LEXAPRO [Concomitant]
     Active Substance: ESCITALOPRAM OXALATE
     Indication: SEDATION
     Route: 048
     Dates: start: 20150122, end: 20150126
  52. MAXICLAN [Concomitant]
     Indication: PROPHYLAXIS
  53. HYTRIN [Concomitant]
     Active Substance: TERAZOSIN HYDROCHLORIDE
     Indication: BENIGN PROSTATIC HYPERPLASIA
     Route: 048
     Dates: start: 20100226
  54. ALL OTHER THERAPEUTIC PRODUCTS [Concomitant]
     Active Substance: UNSPECIFIED INGREDIENT
     Indication: CARDIOVASCULAR EVENT PROPHYLAXIS
     Route: 048
     Dates: start: 20110316
  55. TARGIN [Concomitant]
     Active Substance: NALOXONE HYDROCHLORIDE\OXYCODONE HYDROCHLORIDE
     Indication: NECK PAIN
     Route: 048
     Dates: start: 20140919, end: 20140922
  56. TRIDOL [Concomitant]
     Indication: NECK PAIN
     Route: 048
     Dates: start: 20140923, end: 20140929
  57. ALLED [Concomitant]
     Indication: PRURITUS
     Route: 048
     Dates: start: 20140930, end: 20141112
  58. DEXAMETHASONE. [Concomitant]
     Active Substance: DEXAMETHASONE
     Route: 042
     Dates: start: 20141204, end: 20141204
  59. MAXICLAN [Concomitant]
     Indication: STOMATITIS
     Route: 048
     Dates: start: 20141230, end: 20150109

REACTIONS (1)
  - Intervertebral disc protrusion [Recovering/Resolving]

NARRATIVE: CASE EVENT DATE: 2008
